FAERS Safety Report 10291587 (Version 1)
Quarter: 2014Q3

REPORT INFORMATION
  Report Type: Spontaneous
  Country: IT (occurrence: IT)
  Receive Date: 20140710
  Receipt Date: 20140710
  Transmission Date: 20150326
  Serious: Yes (Other)
  Sender: FDA-Public Use
  Company Number: PHHY2014IT083659

PATIENT
  Age: 66 Year
  Sex: Male

DRUGS (1)
  1. ALLOPURINOL. [Suspect]
     Active Substance: ALLOPURINOL
     Indication: HYPERURICAEMIA

REACTIONS (17)
  - Rash [Unknown]
  - Diarrhoea [Unknown]
  - Eosinophilia [Unknown]
  - Ocular icterus [Unknown]
  - Pruritus [Unknown]
  - Pyrexia [Unknown]
  - Drug reaction with eosinophilia and systemic symptoms [Unknown]
  - Hyperbilirubinaemia [Unknown]
  - Herpes simplex [Unknown]
  - Dysphagia [Unknown]
  - Dermatitis exfoliative [Unknown]
  - Leukocytosis [Unknown]
  - Oesophagitis [Unknown]
  - Oedema peripheral [Unknown]
  - Hepatosplenomegaly [Unknown]
  - Asthenia [Unknown]
  - Hypertransaminasaemia [Unknown]
